FAERS Safety Report 18008673 (Version 2)
Quarter: 2021Q1

REPORT INFORMATION
  Report Type: Spontaneous
  Country: US (occurrence: US)
  Receive Date: 20200710
  Receipt Date: 20210317
  Transmission Date: 20210419
  Serious: Yes (Other)
  Sender: FDA-Public Use
  Company Number: US-GLAXOSMITHKLINE-US2020126477

PATIENT
  Sex: Male

DRUGS (22)
  1. RANITIDINE. [Suspect]
     Active Substance: RANITIDINE
     Indication: ABDOMINAL DISCOMFORT
  2. ZANTAC [Suspect]
     Active Substance: RANITIDINE HYDROCHLORIDE
     Indication: DYSPEPSIA
     Dosage: 150 MG, AS NEEDED A FEW TIMES PER WEEK/ WHEN NOT ON RANITIDINE
     Route: 065
     Dates: start: 199104, end: 201907
  3. RANITIDINE. [Suspect]
     Active Substance: RANITIDINE
     Indication: DYSPEPSIA
     Dosage: 150 MG, AS NEEDED 3X PER WEEK WHEN NOT TAKING ZANTAC
     Route: 065
     Dates: start: 199104, end: 201907
  4. ZANTAC [Suspect]
     Active Substance: RANITIDINE HYDROCHLORIDE
     Indication: DYSPEPSIA
     Dosage: 300 MG, AS NEEDED A FEW TIMES PER WEEK/ WHEN NOT ON RANITIDINE
     Route: 065
     Dates: start: 199104, end: 201907
  5. RANITIDINE HYDROCHLORIDE. [Suspect]
     Active Substance: RANITIDINE HYDROCHLORIDE
     Indication: ABDOMINAL DISCOMFORT
  6. ZANTAC [Suspect]
     Active Substance: RANITIDINE HYDROCHLORIDE
     Indication: ABDOMINAL DISCOMFORT
  7. RANITIDINE HYDROCHLORIDE. [Suspect]
     Active Substance: RANITIDINE HYDROCHLORIDE
     Indication: DYSPEPSIA
  8. RANITIDINE. [Suspect]
     Active Substance: RANITIDINE
     Indication: DYSPEPSIA
     Dosage: 300 MG, AS NEEDED 3X PER WEEK WHEN NOT TAKING ZANTAC
     Route: 065
     Dates: start: 199104, end: 201907
  9. ZANTAC [Suspect]
     Active Substance: RANITIDINE HYDROCHLORIDE
     Indication: ABDOMINAL DISCOMFORT
  10. RANITIDINE CAPSULE [Suspect]
     Active Substance: RANITIDINE
     Indication: DYSPEPSIA
     Dosage: 300 MG, AS NEEDED 3X PER WEEK WHEN NOT TAKING ZANTAC
     Route: 065
     Dates: start: 199104, end: 201907
  11. RANITIDINE CAPSULE [Suspect]
     Active Substance: RANITIDINE
     Indication: ABDOMINAL DISCOMFORT
  12. RANITIDINE. [Suspect]
     Active Substance: RANITIDINE
     Indication: DYSPEPSIA
     Dosage: 150 MG, AS NEEDED 3X PER WEEK WHEN NOT TAKING ZANTAC
     Route: 065
     Dates: start: 199104, end: 201907
  13. RANITIDINE. [Suspect]
     Active Substance: RANITIDINE
     Indication: DYSPEPSIA
     Dosage: 300 MG, AS NEEDED 3X PER WEEK WHEN NOT TAKING ZANTAC
     Route: 065
     Dates: start: 199104, end: 201907
  14. ZANTAC [Suspect]
     Active Substance: RANITIDINE HYDROCHLORIDE
     Indication: DYSPEPSIA
     Dosage: 300 MG, AS NEEDED A FEW TIMES PER WEEK/ WHEN NOT ON RANITIDINE
     Route: 065
     Dates: start: 199104, end: 201907
  15. RANITIDINE. [Suspect]
     Active Substance: RANITIDINE
     Indication: ABDOMINAL DISCOMFORT
  16. ZANTAC [Suspect]
     Active Substance: RANITIDINE HYDROCHLORIDE
     Route: 065
  17. ZANTAC [Suspect]
     Active Substance: RANITIDINE HYDROCHLORIDE
     Indication: DYSPEPSIA
     Dosage: 150 MG, AS NEEDED A FEW TIMES PER WEEK/ WHEN NOT ON RANITIDINE
     Route: 065
     Dates: start: 199104, end: 201907
  18. RANITIDINE. [Suspect]
     Active Substance: RANITIDINE
     Indication: DYSPEPSIA
     Dosage: 300 MG, AS NEEDED 3X PER WEEK WHEN NOT TAKING ZANTAC
     Route: 065
     Dates: start: 199104, end: 201907
  19. RANITIDINE. [Suspect]
     Active Substance: RANITIDINE
     Indication: ABDOMINAL DISCOMFORT
  20. RANITIDINE CAPSULE [Suspect]
     Active Substance: RANITIDINE
     Indication: DYSPEPSIA
     Dosage: 150 MG, AS NEEDED 3X PER WEEK WHEN NOT TAKING ZANTAC
     Route: 065
     Dates: start: 199104, end: 201907
  21. RANITIDINE HYDROCHLORIDE. [Suspect]
     Active Substance: RANITIDINE HYDROCHLORIDE
     Indication: DYSPEPSIA
     Dosage: UNK UNK, OCCASIONAL
     Route: 065
     Dates: start: 199104, end: 201907
  22. RANITIDINE. [Suspect]
     Active Substance: RANITIDINE
     Indication: DYSPEPSIA
     Dosage: 150 MG, AS NEEDED 3X PER WEEK WHEN NOT TAKING ZANTAC
     Route: 065
     Dates: start: 199104, end: 201907

REACTIONS (1)
  - Bladder cancer [Unknown]
